FAERS Safety Report 10696977 (Version 3)
Quarter: 2015Q1

REPORT INFORMATION
  Report Type: Report from Study
  Country: US (occurrence: US)
  Receive Date: 20150108
  Receipt Date: 20150310
  Transmission Date: 20150721
  Serious: Yes (Hospitalization)
  Sender: FDA-Public Use
  Company Number: US-BIOGENIDEC-2014BI137718

PATIENT
  Age: 43 Year
  Sex: Female

DRUGS (2)
  1. NEURONTIN [Concomitant]
     Active Substance: GABAPENTIN
  2. AVONEX [Suspect]
     Active Substance: INTERFERON BETA-1A
     Indication: MULTIPLE SCLEROSIS
     Route: 030
     Dates: start: 20130510, end: 20140329

REACTIONS (3)
  - Maternal exposure during pregnancy [Recovered/Resolved]
  - Fall [Recovered/Resolved]
  - Placental disorder [Recovered/Resolved]

NARRATIVE: CASE EVENT DATE: 201409
